FAERS Safety Report 8157211 (Version 4)
Quarter: 2016Q2

REPORT INFORMATION
  Report Type: Spontaneous
  Country: BR (occurrence: BR)
  Receive Date: 20110927
  Receipt Date: 20160604
  Transmission Date: 20160815
  Serious: Yes (Other)
  Sender: FDA-Public Use
  Company Number: BR-AMGEN-BRASP2011049059

PATIENT
  Age: 5 Year
  Sex: Female
  Weight: 47 kg

DRUGS (2)
  1. ENBREL [Suspect]
     Active Substance: ETANERCEPT
     Dosage: 25 MG, 1X/WEEK
     Route: 065
  2. ENBREL [Suspect]
     Active Substance: ETANERCEPT
     Indication: JUVENILE IDIOPATHIC ARTHRITIS
     Dosage: 25 MG, 2X/WEEK
     Route: 058
     Dates: start: 201012, end: 201109

REACTIONS (7)
  - Product quality issue [Unknown]
  - Pyrexia [Recovered/Resolved]
  - Lower respiratory tract inflammation [Unknown]
  - Injection site pain [Unknown]
  - Pharyngeal inflammation [Unknown]
  - Injection site vesicles [Unknown]
  - Influenza [Unknown]

NARRATIVE: CASE EVENT DATE: 20110912
